FAERS Safety Report 7102591-9 (Version None)
Quarter: 2010Q4

REPORT INFORMATION
  Report Type: 
  Country: None (occurrence: None)
  Receive Date: 20101115
  Receipt Date: 20101108
  Transmission Date: 20110411
  Serious: Yes (Hospitalization)
  Sender: FDA-Public Use
  Company Number: A0877587A

PATIENT
  Age: 55 Year
  Sex: Male
  Weight: 93.6 kg

DRUGS (2)
  1. LAMICTAL [Suspect]
     Dosage: 25MG TWELVE TIMES PER DAY
     Dates: start: 20060101
  2. ATIVAN [Suspect]
     Route: 048

REACTIONS (6)
  - COMA [None]
  - DRUG ADMINISTRATION ERROR [None]
  - GRAND MAL CONVULSION [None]
  - MENTAL STATUS CHANGES [None]
  - SOMNOLENCE [None]
  - TREMOR [None]
